FAERS Safety Report 9759349 (Version 1)
Quarter: 2013Q4

REPORT INFORMATION
  Report Type: Spontaneous
  Country: US (occurrence: None)
  Receive Date: 20131216
  Receipt Date: 20131216
  Transmission Date: 20140711
  Serious: Yes (Hospitalization, Other)
  Sender: FDA-Public Use
  Company Number: 163-21880-12040089(0)

PATIENT
  Age: 70 Year
  Sex: Female

DRUGS (1)
  1. REVLIMID (LENALIDOMIDE) (CAPSULES) [Suspect]
     Indication: MYELODYSPLASTIC SYNDROME
     Dosage: 10 MG, QD, PO? ? ? ?

REACTIONS (5)
  - Anaemia [None]
  - Dehydration [None]
  - Abdominal pain [None]
  - Diarrhoea [None]
  - Bronchitis chronic [None]
